FAERS Safety Report 6272196-0 (Version None)
Quarter: 2009Q3

REPORT INFORMATION
  Report Type: 
  Country: None (occurrence: None)
  Receive Date: 20090717
  Receipt Date: 20090707
  Transmission Date: 20100115
  Serious: Yes (Death, Life-Threatening, Hospitalization)
  Sender: FDA-Public Use
  Company Number: FR-BAXTER-2009BH011384

PATIENT
  Age: 44 Year
  Sex: Female

DRUGS (5)
  1. HOLOXAN BAXTER [Suspect]
     Indication: NON-HODGKIN'S LYMPHOMA
     Route: 042
     Dates: start: 20090507, end: 20090507
  2. MESNA [Suspect]
     Indication: DRUG USE FOR UNKNOWN INDICATION
     Route: 065
     Dates: start: 20090505
  3. MABTHERA [Suspect]
     Indication: NON-HODGKIN'S LYMPHOMA
     Route: 042
     Dates: start: 20090505, end: 20090505
  4. VEPESID [Suspect]
     Indication: NON-HODGKIN'S LYMPHOMA
     Route: 042
     Dates: start: 20090505, end: 20090505
  5. CARBOPLATIN [Suspect]
     Indication: NON-HODGKIN'S LYMPHOMA
     Route: 042
     Dates: start: 20090506, end: 20090506

REACTIONS (2)
  - BONE MARROW FAILURE [None]
  - SHOCK HAEMORRHAGIC [None]
